FAERS Safety Report 8271811-X (Version None)
Quarter: 2012Q2

REPORT INFORMATION
  Report Type: 
  Country: None (occurrence: None)
  Receive Date: 20120410
  Receipt Date: 20110419
  Transmission Date: 20120825
  Serious: No
  Sender: FDA-Public Use
  Company Number: US-BAUSCH-2011BL002612

PATIENT
  Age: 77 Year
  Sex: Female

DRUGS (2)
  1. POLYMYXIN B SULFATES AND TRIMETHOPRIM SULFATE [Suspect]
     Route: 047
     Dates: start: 20110223, end: 20110224
  2. POLYMYXIN B SULFATES AND TRIMETHOPRIM SULFATE [Suspect]
     Indication: CONJUNCTIVITIS
     Route: 047
     Dates: start: 20110223, end: 20110224

REACTIONS (3)
  - ERYTHEMA OF EYELID [None]
  - PERIORBITAL OEDEMA [None]
  - EYELID OEDEMA [None]
